FAERS Safety Report 20369869 (Version 5)
Quarter: 2022Q3

REPORT INFORMATION
  Report Type: Report from Study
  Country: FR (occurrence: FR)
  Receive Date: 20220124
  Receipt Date: 20220901
  Transmission Date: 20221027
  Serious: Yes (Hospitalization, Other)
  Sender: FDA-Public Use
  Company Number: FR-BRISTOL-MYERS SQUIBB COMPANY-BMS-2022-006072

PATIENT
  Age: 67 Year
  Sex: Male

DRUGS (2)
  1. NIVOLUMAB [Suspect]
     Active Substance: NIVOLUMAB
     Indication: Renal cancer metastatic
     Dosage: 230 MILLIGRAM, Q3WK
     Route: 065
     Dates: start: 20211217, end: 20220114
  2. IPILIMUMAB [Suspect]
     Active Substance: IPILIMUMAB
     Indication: Renal cancer metastatic
     Dosage: 75 MILLIGRAM, Q3WK
     Route: 065
     Dates: start: 20211217, end: 20220114

REACTIONS (5)
  - Hyperthermia [Recovered/Resolved]
  - Thyroiditis [Recovered/Resolved]
  - Urinary tract infection [Recovered/Resolved]
  - Hypertrophy [Unknown]
  - Off label use [Unknown]

NARRATIVE: CASE EVENT DATE: 20220107
